FAERS Safety Report 11932569 (Version 1)
Quarter: 2016Q1

REPORT INFORMATION
  Report Type: Spontaneous
  Country: US (occurrence: US)
  Receive Date: 20160120
  Receipt Date: 20160120
  Transmission Date: 20160526
  Serious: Yes (Hospitalization)
  Sender: FDA-Public Use
  Company Number: US-HQ SPECIALTY-US-2016INT000013

PATIENT
  Age: 49 Year
  Sex: Male

DRUGS (9)
  1. CISPLATIN. [Suspect]
     Active Substance: CISPLATIN
     Dosage: 75 MG/M2 ON DAY 1
  2. PACLITAXEL. [Suspect]
     Active Substance: PACLITAXEL
     Indication: ANAL CANCER METASTATIC
     Dosage: 175 MG/M2/DAY ON DAY 1
  3. IFOSFAMIDE. [Suspect]
     Active Substance: IFOSFAMIDE
     Indication: ANAL CANCER METASTATIC
     Dosage: 1000 MG/M2/DAY, ON DAYS 1 THROUGH 4
  4. CISPLATIN. [Suspect]
     Active Substance: CISPLATIN
     Indication: ANAL CANCER
     Dosage: 60 MG/M2, ON DAY 1 AND 29
     Route: 042
  5. MESNA. [Suspect]
     Active Substance: MESNA
     Indication: ANAL CANCER METASTATIC
     Dosage: 200 MG/M2, BEFORE IFOSFAMIDE ON DAYS 1-4
     Route: 042
  6. PEGFILGRASTIM [Suspect]
     Active Substance: PEGFILGRASTIM
     Indication: ANAL CANCER METASTATIC
     Dosage: 6 MG, ON DAY 5
     Route: 058
  7. 5-FLUOROURACIL                     /00098801/ [Suspect]
     Active Substance: FLUOROURACIL
     Indication: ANAL CANCER
     Dosage: 1000 MG/M2, DAYS 1-4, 29-32
     Route: 042
  8. MESNA. [Suspect]
     Active Substance: MESNA
     Dosage: 400 MG/M2, AFTER IFOSFAMIDE ON DAYS 1 THROUGH 4
     Route: 042
  9. MESNA. [Suspect]
     Active Substance: MESNA
     Dosage: 400 MG/M2, AFTER IFOSFAMIDE ON DAYS 1 THROUGH 4
     Route: 048

REACTIONS (4)
  - Infection [Unknown]
  - Fatigue [Unknown]
  - Febrile neutropenia [Unknown]
  - Alopecia [Unknown]
